FAERS Safety Report 15198472 (Version 1)
Quarter: 2018Q3

REPORT INFORMATION
  Report Type: Report from Study
  Country: US (occurrence: US)
  Receive Date: 20180725
  Receipt Date: 20180725
  Transmission Date: 20181010
  Serious: Yes (Other)
  Sender: FDA-Public Use
  Company Number: US-GILEAD-2018-0351555

PATIENT
  Sex: Male

DRUGS (1)
  1. RANOLAZINE. [Suspect]
     Active Substance: RANOLAZINE
     Indication: ANGINA PECTORIS
     Dosage: 1000 MG, BID
     Route: 048

REACTIONS (5)
  - Seizure [Unknown]
  - Dementia [Not Recovered/Not Resolved]
  - Cerebrovascular accident [Unknown]
  - Dementia Alzheimer^s type [Not Recovered/Not Resolved]
  - Amnesia [Not Recovered/Not Resolved]
